FAERS Safety Report 9249094 (Version 1)
Quarter: 2013Q2

REPORT INFORMATION
  Report Type: Spontaneous
  Country: US (occurrence: US)
  Receive Date: 20130423
  Receipt Date: 20130423
  Transmission Date: 20140414
  Serious: Yes (Hospitalization, Other)
  Sender: FDA-Public Use
  Company Number: US-ASTRAZENECA-2013SE25298

PATIENT
  Age: 25859 Day
  Sex: Male
  Weight: 105 kg

DRUGS (14)
  1. CASODEX [Suspect]
     Indication: PROSTATE CANCER
     Route: 048
     Dates: start: 201212
  2. FIRMAGON [Suspect]
     Indication: PROSTATE CANCER
     Dosage: LOADING DOSE OF 240 MG
     Route: 058
     Dates: start: 20121226
  3. FIRMAGON [Suspect]
     Indication: PROSTATE CANCER
     Route: 058
     Dates: start: 20130123
  4. FIRMAGON [Suspect]
     Indication: PROSTATE CANCER
     Route: 058
     Dates: start: 20130220
  5. FIRMAGON [Suspect]
     Indication: PROSTATE CANCER
     Route: 058
     Dates: start: 20130320
  6. HYDROCHLOROTHIAZIDE [Concomitant]
  7. ZOFRAN [Concomitant]
     Indication: NAUSEA
     Dosage: 4 MG FOUR TIMES A DAY AS NEEDED
  8. ZOFRAN [Concomitant]
     Indication: VOMITING
     Dosage: 4 MG FOUR TIMES A DAY AS NEEDED
  9. POTASSIUM CITRATE [Concomitant]
     Dosage: 5 MEQ FOUR TABLETS FOUR TIME DAILY
  10. POTASSIUM CHLORIDE [Concomitant]
  11. TYLENOL [Concomitant]
     Indication: PAIN
     Dosage: 500 MG,EVERY FOUR HOURS AS NECESSARY
  12. UROCIT-K [Concomitant]
     Indication: CALCULUS URINARY
  13. UROCIT-K [Concomitant]
     Indication: HYPOCITRATURIA
  14. NATURAL VITAMIN D [Concomitant]
     Dosage: 2000 UNITS DAILY

REACTIONS (10)
  - Sepsis [Recovered/Resolved]
  - Urinary tract infection [Recovering/Resolving]
  - Renal failure acute [Recovered/Resolved]
  - Injection site reaction [Unknown]
  - Hypersensitivity [Recovered/Resolved]
  - Tachycardia [Recovered/Resolved]
  - Dyspnoea [Recovered/Resolved]
  - Wheezing [Recovered/Resolved]
  - Cyanosis [Recovered/Resolved]
  - Hypotension [Recovered/Resolved]
